FAERS Safety Report 21595749 (Version 3)
Quarter: 2022Q4

REPORT INFORMATION
  Report Type: Report from Study
  Country: US (occurrence: US)
  Receive Date: 20221115
  Receipt Date: 20221119
  Transmission Date: 20230112
  Serious: Yes (Other)
  Sender: FDA-Public Use
  Company Number: US-002147023-NVSC2022US256948

PATIENT
  Sex: Male

DRUGS (2)
  1. ENTRESTO [Suspect]
     Active Substance: SACUBITRIL\VALSARTAN
     Indication: Product used for unknown indication
     Dosage: 1 DOSAGE FORM, BID 50 MG (24/26 MG: SACUBITRIL 24.3 MG, VALSARTAN 25.7 MG)
     Route: 048
     Dates: start: 20220815
  2. ENTRESTO [Suspect]
     Active Substance: SACUBITRIL\VALSARTAN
     Dosage: UNK, (DOUBLE HIS DOSE)
     Route: 048

REACTIONS (1)
  - Ejection fraction decreased [Unknown]
